APPROVED DRUG PRODUCT: GADOTERATE MEGLUMINE
Active Ingredient: GADOTERATE MEGLUMINE
Strength: 7.538GM/20ML (376.9MG/ML)
Dosage Form/Route: SOLUTION;INTRAVENOUS
Application: A215304 | Product #004
Applicant: JIANGSU HENGRUI PHARMACEUTICALS CO LTD
Approved: Apr 11, 2022 | RLD: No | RS: No | Type: DISCN